FAERS Safety Report 18343594 (Version 1)
Quarter: 2020Q4

REPORT INFORMATION
  Report Type: Spontaneous
  Country: TR (occurrence: TR)
  Receive Date: 20201005
  Receipt Date: 20201005
  Transmission Date: 20210113
  Serious: Yes (Other)
  Sender: FDA-Public Use
  Company Number: TR-LUPIN PHARMACEUTICALS INC.-2020-06715

PATIENT
  Age: 54 Year
  Sex: Female

DRUGS (8)
  1. BACITRACIN. [Concomitant]
     Active Substance: BACITRACIN
     Indication: SKIN TEST
     Dosage: UNK
     Route: 062
  2. NEOMYCIN SULFATE. [Concomitant]
     Active Substance: NEOMYCIN SULFATE
     Indication: ERYTHEMA
     Dosage: UNK
     Route: 061
  3. CORTISONE [Concomitant]
     Active Substance: CORTISONE
     Indication: PRURITUS
     Dosage: UNK
     Route: 061
  4. CORTISONE [Concomitant]
     Active Substance: CORTISONE
     Indication: ERYTHEMA
  5. CLOBETASOL PROPIONATE. [Suspect]
     Active Substance: CLOBETASOL PROPIONATE
     Indication: DERMATITIS ALLERGIC
     Dosage: UNK
     Route: 061
  6. BACITRACIN. [Concomitant]
     Active Substance: BACITRACIN
     Indication: ERYTHEMA
     Dosage: UNK
     Route: 061
  7. BACITRACIN. [Concomitant]
     Active Substance: BACITRACIN
     Indication: PRURITUS
  8. NEOMYCIN SULFATE. [Concomitant]
     Active Substance: NEOMYCIN SULFATE
     Indication: PRURITUS

REACTIONS (1)
  - Drug resistance [Unknown]
